FAERS Safety Report 7655406-4 (Version None)
Quarter: 2011Q3

REPORT INFORMATION
  Report Type: 
  Country: None (occurrence: None)
  Receive Date: 20110801
  Receipt Date: 20110714
  Transmission Date: 20111222
  Serious: Yes (Other)
  Sender: FDA-Public Use
  Company Number: 2011MA008890

PATIENT
  Age: 2 Year
  Sex: Male

DRUGS (1)
  1. PHENYTOIN [Suspect]
     Indication: HEAD INJURY

REACTIONS (17)
  - GRAND MAL CONVULSION [None]
  - MOTOR DYSFUNCTION [None]
  - MUSCULOSKELETAL STIFFNESS [None]
  - SKULL FRACTURE [None]
  - APHASIA [None]
  - NYSTAGMUS [None]
  - EXTENSOR PLANTAR RESPONSE [None]
  - HEAD INJURY [None]
  - VOMITING [None]
  - TOXICITY TO VARIOUS AGENTS [None]
  - ANTICONVULSANT DRUG LEVEL ABOVE THERAPEUTIC [None]
  - HYPERREFLEXIA [None]
  - DEPRESSED LEVEL OF CONSCIOUSNESS [None]
  - PYREXIA [None]
  - LETHARGY [None]
  - GAIT DISTURBANCE [None]
  - ENCEPHALITIS [None]
